FAERS Safety Report 26196315 (Version 1)
Quarter: 2025Q4

REPORT INFORMATION
  Report Type: Report from Study
  Country: US (occurrence: US)
  Receive Date: 20251224
  Receipt Date: 20251224
  Transmission Date: 20260118
  Serious: Yes (Hospitalization)
  Sender: ALEXION PHARMACEUTICALS
  Company Number: US-ASTRAZENECA-202512NAM016836US

PATIENT
  Sex: Female

DRUGS (1)
  1. OLAPARIB [Suspect]
     Active Substance: OLAPARIB
     Indication: Breast cancer female
     Dosage: 450 MILLIGRAM, BID 2 (150 MG) TABLETS BY MOUTH IN THE MORNING AND 1 (150MG) TABLET BY MOUTH IN THE EVENING
     Route: 061
     Dates: start: 202502

REACTIONS (1)
  - Leukaemia [Unknown]
